FAERS Safety Report 9633548 (Version 1)
Quarter: 2013Q4

REPORT INFORMATION
  Report Type: Spontaneous
  Country: FR (occurrence: None)
  Receive Date: 20131017
  Receipt Date: 20131017
  Transmission Date: 20140711
  Serious: Yes (Hospitalization, Other)
  Sender: FDA-Public Use
  Company Number: AUR-APL-2013-08458

PATIENT
  Age: 87 Year
  Sex: Female

DRUGS (14)
  1. BISOPROLOL (BISOPROLOL) [Suspect]
  2. DOMPERIDONE (DOMPERIDONE) [Suspect]
  3. RAMIPRIL (RAMIPRIL) [Suspect]
  4. GLIMEPIRIDE (GLIMEPIRIDE) [Suspect]
  5. ALPRAZOLAM (ALPRAZOLAM) [Suspect]
  6. FUROSEMIDE (FUROSEMIDE) [Suspect]
  7. LORAZEPAM (LORAZEPAM) [Suspect]
  8. ESOMEPRAZOLE (ESOMEPRAZOLE) [Suspect]
  9. SOTALOL HYDROCHLORIDE (SOTALOL HYDROCHLORIDE) [Suspect]
  10. KALEORID (POTASSIUM CHLORIDE) [Suspect]
  11. ONGLYZA (SAXAGLIPTIN HYDROCHLORIDE) [Suspect]
     Route: 048
  12. STRESAM (ETIFOXINE HYDROCHLORIDE) [Suspect]
  13. TARDYFERON (FERROUS SULFATE) [Suspect]
  14. PRADAXA (DABIGATRAN ETEXILATE MESILATE) [Suspect]

REACTIONS (2)
  - Syncope [None]
  - Drug interaction [None]
